FAERS Safety Report 6599421-0 (Version None)
Quarter: 2010Q1

REPORT INFORMATION
  Report Type: 
  Country: None (occurrence: None)
  Receive Date: 20100217
  Receipt Date: 20100202
  Transmission Date: 20100710
  Serious: Yes (Death, Hospitalization)
  Sender: FDA-Public Use
  Company Number: WAES 0911USA04864

PATIENT
  Age: 75 Year
  Sex: Male
  Weight: 101.6057 kg

DRUGS (9)
  1. TAB DECADRON 16 MG [Suspect]
     Indication: METASTASES TO CENTRAL NERVOUS SYSTEM
     Dosage: 4 MG QID PO
     Route: 048
     Dates: start: 20090827
  2. BLINDED THERAPY [Suspect]
     Dosage: PO
     Route: 048
     Dates: start: 20090831, end: 20091024
  3. DIAGNOSTIC RADIOPHARMACEUTICAL (UNSPECIFIED) UNK [Suspect]
     Dosage: 5 DAYS ON 16 DAYS OFF
     Dates: start: 20090831, end: 20091025
  4. LASIX [Suspect]
     Indication: HYPERTENSION
     Dosage: 20 MG DAILY PO
     Route: 048
     Dates: start: 20080901
  5. LASIX [Suspect]
     Indication: OEDEMA
     Dosage: 20 MG DAILY PO
     Route: 048
     Dates: start: 20080901
  6. CARDURA [Concomitant]
  7. KEPPRA [Concomitant]
  8. METOPROLOL [Concomitant]
  9. SPIRONOLACTONE [Concomitant]

REACTIONS (17)
  - BLOOD ALBUMIN DECREASED [None]
  - BODY TEMPERATURE INCREASED [None]
  - CONDITION AGGRAVATED [None]
  - DEEP VEIN THROMBOSIS [None]
  - DEHYDRATION [None]
  - DYSPNOEA [None]
  - FALL [None]
  - GENERAL PHYSICAL HEALTH DETERIORATION [None]
  - HYPERGLYCAEMIA [None]
  - MYOCARDIAL ISCHAEMIA [None]
  - PLATELET COUNT DECREASED [None]
  - RENAL FAILURE [None]
  - RESPIRATORY DISTRESS [None]
  - SEPSIS [None]
  - SHOCK [None]
  - SKIN DISCOLOURATION [None]
  - STRESS [None]
